FAERS Safety Report 22190449 (Version 1)
Quarter: 2023Q2

REPORT INFORMATION
  Report Type: Spontaneous
  Country: JP (occurrence: JP)
  Receive Date: 20230410
  Receipt Date: 20230410
  Transmission Date: 20230722
  Serious: Yes (Other)
  Sender: FDA-Public Use
  Company Number: JP-SUN PHARMACEUTICAL INDUSTRIES LTD-2023RR-383842

PATIENT
  Age: 58 Year
  Sex: Male

DRUGS (2)
  1. ACETAMINOPHEN [Suspect]
     Active Substance: ACETAMINOPHEN
     Indication: Thyroiditis subacute
     Dosage: 1000 MILLIGRAM, DAILY
     Route: 048
  2. PREDNISOLONE [Suspect]
     Active Substance: PREDNISOLONE
     Indication: Thyroiditis subacute
     Dosage: 20 MILLIGRAM, DAILY
     Route: 048

REACTIONS (3)
  - Therapeutic product effect incomplete [Unknown]
  - Fatigue [Unknown]
  - Hypothyroidism [Recovered/Resolved]
